FAERS Safety Report 13581505 (Version 1)
Quarter: 2017Q2

REPORT INFORMATION
  Report Type: Spontaneous
  Country: US (occurrence: US)
  Receive Date: 20170525
  Receipt Date: 20170525
  Transmission Date: 20170830
  Serious: Yes (Other)
  Sender: FDA-Public Use
  Company Number: US-FLAMINGO-000613

PATIENT
  Age: 57 Year
  Sex: Female

DRUGS (3)
  1. METRONIDAZOLE. [Suspect]
     Active Substance: METRONIDAZOLE
     Indication: COLITIS
  2. MORPHINE [Suspect]
     Active Substance: MORPHINE
     Indication: COLITIS
  3. CEFOXITIN [Suspect]
     Active Substance: CEFOXITIN SODIUM
     Indication: COLITIS

REACTIONS (3)
  - Cardiac arrest [Recovering/Resolving]
  - Systemic mastocytosis [Unknown]
  - Anaphylactic reaction [Unknown]
